FAERS Safety Report 6234683-0 (Version None)
Quarter: 2009Q2

REPORT INFORMATION
  Report Type: 
  Country: None (occurrence: None)
  Receive Date: 20090618
  Receipt Date: 20090212
  Transmission Date: 20091009
  Serious: No
  Sender: FDA-Public Use
  Company Number: US-BAYER-200910592BCC

PATIENT
  Age: 64 Year
  Sex: Male
  Weight: 73 kg

DRUGS (5)
  1. ALEVE [Suspect]
     Indication: MYALGIA
     Dosage: AS USED: 220 MG  UNIT DOSE: 220 MG
     Dates: start: 20090201
  2. NIASPAN [Concomitant]
  3. LOTREL [Concomitant]
  4. VASOTEC [Concomitant]
  5. ASPIRIN [Concomitant]

REACTIONS (2)
  - ERYTHEMA [None]
  - PRURITUS [None]
